FAERS Safety Report 14566907 (Version 1)
Quarter: 2018Q1

REPORT INFORMATION
  Report Type: Spontaneous
  Country: US (occurrence: US)
  Receive Date: 20180223
  Receipt Date: 20180223
  Transmission Date: 20180509
  Serious: No
  Sender: FDA-Public Use
  Company Number: US-PFIZER INC-2018076703

PATIENT
  Age: 57 Year
  Sex: Male

DRUGS (6)
  1. LYRICA [Suspect]
     Active Substance: PREGABALIN
     Indication: BACK PAIN
  2. MELOXICAM. [Concomitant]
     Active Substance: MELOXICAM
     Indication: NEUROPATHY PERIPHERAL
     Dosage: 7.5 MG, 2X/DAY
  3. LYRICA [Suspect]
     Active Substance: PREGABALIN
     Indication: BURNING SENSATION
  4. MELOXICAM. [Concomitant]
     Active Substance: MELOXICAM
     Indication: BACK PAIN
  5. LYRICA [Suspect]
     Active Substance: PREGABALIN
     Indication: NEUROPATHY PERIPHERAL
     Dosage: 25 MG, 2X/DAY
     Route: 048
  6. MELOXICAM. [Concomitant]
     Active Substance: MELOXICAM
     Indication: BODY HEIGHT BELOW NORMAL

REACTIONS (5)
  - Abnormal dreams [Unknown]
  - Poor quality sleep [Unknown]
  - Disturbance in attention [Unknown]
  - Gait disturbance [Unknown]
  - Memory impairment [Not Recovered/Not Resolved]
